FAERS Safety Report 19304168 (Version 2)
Quarter: 2021Q2

REPORT INFORMATION
  Report Type: Spontaneous
  Country: US (occurrence: US)
  Receive Date: 20210525
  Receipt Date: 20210530
  Transmission Date: 20210717
  Serious: No
  Sender: FDA-Public Use
  Company Number: US-ELI_LILLY_AND_COMPANY-US202105004151

PATIENT
  Age: 74 Year
  Sex: Female

DRUGS (6)
  1. ERBITUX [Suspect]
     Active Substance: CETUXIMAB
     Indication: COLORECTAL CANCER
     Dosage: 600 MG, 2/M
     Route: 042
     Dates: start: 20210315
  2. TYLENOL WITH CODEINE [Concomitant]
     Active Substance: ACETAMINOPHEN\CODEINE PHOSPHATE
     Indication: CANCER PAIN
     Dosage: UNK UNK, PRN
  3. NITROGLYCERIN. [Concomitant]
     Active Substance: NITROGLYCERIN
     Indication: MITRAL VALVE PROLAPSE
  4. ERBITUX [Suspect]
     Active Substance: CETUXIMAB
     Dosage: 250 MG, 2/M
     Route: 042
     Dates: start: 202104
  5. CLINDAMYCIN. [Suspect]
     Active Substance: CLINDAMYCIN
     Indication: ECZEMA
     Dosage: UNK UNK, UNKNOWN
     Route: 065
  6. WARFARIN [Concomitant]
     Active Substance: WARFARIN
     Indication: FACTOR II MUTATION

REACTIONS (12)
  - Visual impairment [Recovered/Resolved]
  - Feeling hot [Not Recovered/Not Resolved]
  - Off label use [Unknown]
  - Gait disturbance [Unknown]
  - Acne [Recovered/Resolved]
  - Eczema [Not Recovered/Not Resolved]
  - Scab [Recovering/Resolving]
  - Hypotension [Recovered/Resolved]
  - Dehydration [Recovered/Resolved]
  - Erythema [Not Recovered/Not Resolved]
  - Pruritus [Not Recovered/Not Resolved]
  - Skin exfoliation [Not Recovered/Not Resolved]

NARRATIVE: CASE EVENT DATE: 20210506
